APPROVED DRUG PRODUCT: FENOFIBRIC ACID
Active Ingredient: CHOLINE FENOFIBRATE
Strength: EQ 135MG FENOFIBRIC ACID
Dosage Form/Route: CAPSULE, DELAYED RELEASE;ORAL
Application: A201573 | Product #001
Applicant: PH HEALTH LTD
Approved: Jul 18, 2013 | RLD: No | RS: No | Type: DISCN